FAERS Safety Report 7868571 (Version 3)
Quarter: 2012Q4

REPORT INFORMATION
  Report Type: 
  Country: US (occurrence: US)
  Receive Date: 20110323
  Receipt Date: 20121227
  Transmission Date: 20130627
  Serious: Yes (Hospitalization)
  Sender: FDA-Public Use
  Company Number: US-ASTRAZENECA-2011SE14067

PATIENT
  Age: 870 Month
  Sex: Male

DRUGS (1)
  1. SYMBICORT [Suspect]
     Dosage: FREQUENCY UNKNOWN
     Route: 055
     Dates: start: 2005

REACTIONS (8)
  - Wound infection [Unknown]
  - Deafness [Not Recovered/Not Resolved]
  - Vertigo [Not Recovered/Not Resolved]
  - Respiratory rate increased [Unknown]
  - Dyspnoea [Unknown]
  - Suffocation feeling [Unknown]
  - Limb discomfort [Unknown]
  - Drug dose omission [Unknown]
